FAERS Safety Report 20029722 (Version 1)
Quarter: 2021Q4

REPORT INFORMATION
  Report Type: Spontaneous
  Country: US (occurrence: US)
  Receive Date: 20211103
  Receipt Date: 20211103
  Transmission Date: 20220304
  Serious: No
  Sender: FDA-Public Use
  Company Number: US-GILEAD-2021-0554295

PATIENT
  Sex: Male

DRUGS (14)
  1. SOFOSBUVIR\VELPATASVIR [Suspect]
     Active Substance: SOFOSBUVIR\VELPATASVIR
     Indication: Chronic hepatitis C
     Dosage: 1 DOSAGE FORM, QD
     Route: 048
     Dates: start: 202109
  2. ALBUTEROL SULFATE [Concomitant]
     Active Substance: ALBUTEROL SULFATE
  3. VRAYLAR [Concomitant]
     Active Substance: CARIPRAZINE
  4. OXYCODONE HYDROCHLORIDE [Concomitant]
     Active Substance: OXYCODONE HYDROCHLORIDE
  5. AMITRIPTYLINE HYDROCHLORIDE [Concomitant]
     Active Substance: AMITRIPTYLINE HYDROCHLORIDE
  6. DIAZEPAM [Concomitant]
     Active Substance: DIAZEPAM
  7. HYDROCHLOROTHIAZIDE\LOSARTAN POTASSIUM [Concomitant]
     Active Substance: HYDROCHLOROTHIAZIDE\LOSARTAN POTASSIUM
  8. TESTOSTERONE [Concomitant]
     Active Substance: TESTOSTERONE
  9. CIALIS [Concomitant]
     Active Substance: TADALAFIL
  10. GABAPENTIN [Concomitant]
     Active Substance: GABAPENTIN
  11. AMPHETAMINE [Concomitant]
     Active Substance: AMPHETAMINE
  12. HYDROCHLOROTHIAZIDE [Concomitant]
     Active Substance: HYDROCHLOROTHIAZIDE
  13. VITAMIN D3 [Concomitant]
     Active Substance: CHOLECALCIFEROL
  14. ASPIRIN [Concomitant]
     Active Substance: ASPIRIN

REACTIONS (1)
  - Energy increased [Not Recovered/Not Resolved]
